FAERS Safety Report 9694982 (Version 1)
Quarter: 2013Q4

REPORT INFORMATION
  Report Type: Spontaneous
  Country: US (occurrence: US)
  Receive Date: 20131119
  Receipt Date: 20131119
  Transmission Date: 20140711
  Serious: Yes (Hospitalization)
  Sender: FDA-Public Use
  Company Number: US-BRISTOL-MYERS SQUIBB COMPANY-19801208

PATIENT
  Age: 83 Year
  Sex: Male
  Weight: 72.56 kg

DRUGS (2)
  1. COUMADIN [Suspect]
     Indication: ATRIAL FIBRILLATION
     Dosage: COUMADIN 3MG; 9MG/DAY?FOR 15 YEARS
  2. ASPIRIN [Concomitant]
     Dosage: LOW-DOSE

REACTIONS (6)
  - Rib fracture [Unknown]
  - Fall [Unknown]
  - Traumatic haemorrhage [Unknown]
  - Weight decreased [Unknown]
  - Contusion [Unknown]
  - International normalised ratio fluctuation [Unknown]
